FAERS Safety Report 7319121-9 (Version None)
Quarter: 2011Q1

REPORT INFORMATION
  Report Type: 
  Country: None (occurrence: None)
  Receive Date: 20110223
  Receipt Date: 20110223
  Transmission Date: 20110831
  Serious: No
  Sender: FDA-Public Use
  Company Number: None

PATIENT
  Age: 28 Year
  Sex: Male
  Weight: 79.3795 kg

DRUGS (1)
  1. AMBIEN [Suspect]
     Dosage: 10 MG PRN

REACTIONS (2)
  - SEXUALLY INAPPROPRIATE BEHAVIOUR [None]
  - AMNESIA [None]
